FAERS Safety Report 7483060-3 (Version None)
Quarter: 2011Q2

REPORT INFORMATION
  Report Type: 
  Country: None (occurrence: None)
  Receive Date: 20110516
  Receipt Date: 20110505
  Transmission Date: 20111010
  Serious: Yes (Hospitalization, Disabling)
  Sender: FDA-Public Use
  Company Number: DE-BAYER-2010-004208

PATIENT
  Age: 75 Year
  Sex: Male
  Weight: 91 kg

DRUGS (8)
  1. AVELOX [Suspect]
     Indication: SINUSITIS
     Dosage: 400 MG, QD
     Route: 048
     Dates: start: 20101120, end: 20101201
  2. RAMIPRIL [Concomitant]
     Indication: PULMONARY HYPERTENSION
     Dosage: 2.5 MG, QD (1-0-0)
     Route: 048
     Dates: start: 20101120, end: 20101206
  3. ATEHEXAL [Concomitant]
     Indication: PULMONARY HYPERTENSION
     Dosage: 50 MG, QD
  4. VALORON N RETARD [Concomitant]
     Dosage: 50 MG, BID
     Route: 048
  5. AVELOX [Suspect]
     Indication: PNEUMONIA
  6. TORSEMIDE [Concomitant]
     Dosage: 20 MG, BID (1-1-0)
     Dates: start: 20101109
  7. FEBUXOSTAT [Suspect]
     Indication: HYPERURICAEMIA
     Dosage: 80 MG, QD (0-0-1)
     Route: 048
     Dates: start: 20101116, end: 20101202
  8. MARCUMAR [Suspect]
     Indication: DEEP VEIN THROMBOSIS
     Dosage: INR (CONTIUNUOUS)

REACTIONS (1)
  - LEUKOCYTOCLASTIC VASCULITIS [None]
